FAERS Safety Report 15643091 (Version 1)
Quarter: 2018Q4

REPORT INFORMATION
  Report Type: Spontaneous
  Country: US (occurrence: US)
  Receive Date: 20181114
  Receipt Date: 20181114
  Transmission Date: 20190205
  Serious: Yes (Hospitalization)
  Sender: FDA-Public Use
  Company Number: None

PATIENT
  Age: 18 Year
  Sex: Female
  Weight: 62.2 kg

DRUGS (6)
  1. CYCLOPHOSPHAMIDE. [Suspect]
     Active Substance: CYCLOPHOSPHAMIDE
     Dates: end: 20180531
  2. VINCRISTINE SULFATE. [Suspect]
     Active Substance: VINCRISTINE SULFATE
     Dates: end: 20180607
  3. BLEOMYCIN [Suspect]
     Active Substance: BLEOMYCIN SULFATE
     Dates: end: 20180606
  4. PREDNISONE. [Suspect]
     Active Substance: PREDNISONE
     Dates: end: 20180605
  5. DOXORUBICIN HYDROCHLORIDE. [Suspect]
     Active Substance: DOXORUBICIN HYDROCHLORIDE
     Dates: end: 20180531
  6. ETOPOSIDE (VP-16) [Suspect]
     Active Substance: ETOPOSIDE
     Dates: end: 20180601

REACTIONS (12)
  - Tachycardia [None]
  - Dizziness [None]
  - Neutrophil count abnormal [None]
  - Sepsis [None]
  - Platelet count decreased [None]
  - Urine analysis abnormal [None]
  - Dysuria [None]
  - Hypotension [None]
  - Pyrexia [None]
  - Mucosal inflammation [None]
  - Pain [None]
  - Haemoglobin decreased [None]

NARRATIVE: CASE EVENT DATE: 20180609
